FAERS Safety Report 17352739 (Version 1)
Quarter: 2020Q1

REPORT INFORMATION
  Report Type: Spontaneous
  Country: CA (occurrence: CA)
  Receive Date: 20200131
  Receipt Date: 20200131
  Transmission Date: 20200409
  Serious: Yes (Hospitalization)
  Sender: FDA-Public Use
  Company Number: CA-ROCHE-2529217

PATIENT
  Age: 83 Year
  Sex: Female

DRUGS (38)
  1. NORTRIPTYLINE [Concomitant]
     Active Substance: NORTRIPTYLINE
     Route: 065
  2. VITAMIN C [Concomitant]
     Active Substance: ASCORBIC ACID
     Route: 065
  3. CELEBREX [Suspect]
     Active Substance: CELECOXIB
     Indication: ARTHRITIS
     Route: 048
  4. FENTANYL. [Suspect]
     Active Substance: FENTANYL
     Indication: PRODUCT USED FOR UNKNOWN INDICATION
     Route: 065
  5. ORENCIA [Suspect]
     Active Substance: ABATACEPT
     Indication: RHEUMATOID ARTHRITIS
     Route: 042
  6. SULFASALAZINE. [Suspect]
     Active Substance: SULFASALAZINE
     Indication: RHEUMATOID ARTHRITIS
     Route: 048
  7. BIOTIN [Concomitant]
     Active Substance: BIOTIN
  8. THIAMINE HCL [Concomitant]
     Active Substance: THIAMINE HYDROCHLORIDE
  9. TRAZODONE [Concomitant]
     Active Substance: TRAZODONE HYDROCHLORIDE
     Route: 065
  10. ACTONEL [Concomitant]
     Active Substance: RISEDRONATE SODIUM
     Route: 065
  11. GABAPENTIN. [Suspect]
     Active Substance: GABAPENTIN
     Indication: PRODUCT USED FOR UNKNOWN INDICATION
     Route: 048
  12. METHOTREXATE SODIUM. [Suspect]
     Active Substance: METHOTREXATE SODIUM
     Indication: RHEUMATOID ARTHRITIS
     Dosage: 1.0 DOSAGE FORMS
     Route: 058
  13. MYOCHRYSINE [Suspect]
     Active Substance: GOLD SODIUM THIOMALATE
     Indication: RHEUMATOID ARTHRITIS
     Route: 030
  14. DIPHENOXYLATE HCL [Concomitant]
  15. RIBOFLAVIN [Concomitant]
     Active Substance: RIBOFLAVIN
  16. THIAMINE MONONITRATE [Concomitant]
     Active Substance: THIAMINE MONONITRATE
  17. XELJANZ [Concomitant]
     Active Substance: TOFACITINIB CITRATE
  18. ACLASTA [Concomitant]
     Active Substance: ZOLEDRONIC ACID
     Route: 042
  19. ACTEMRA [Suspect]
     Active Substance: TOCILIZUMAB
     Indication: RHEUMATOID ARTHRITIS
     Route: 042
  20. ARAVA [Suspect]
     Active Substance: LEFLUNOMIDE
     Indication: PRODUCT USED FOR UNKNOWN INDICATION
     Route: 048
  21. HYDROXYCHLOROQUINE [Suspect]
     Active Substance: HYDROXYCHLOROQUINE
     Indication: RHEUMATOID ARTHRITIS
     Route: 065
  22. PERCOCET [Concomitant]
     Active Substance: ACETAMINOPHEN\OXYCODONE HYDROCHLORIDE
     Route: 065
  23. VITAMIN A [RETINOL] [Concomitant]
     Active Substance: RETINOL
     Route: 065
  24. APO-GABAPENTIN [Suspect]
     Active Substance: GABAPENTIN
     Indication: PRODUCT USED FOR UNKNOWN INDICATION
     Route: 048
  25. CHOLECALCIFEROLUM [Concomitant]
  26. FERROUS FUMARATE [Concomitant]
     Active Substance: FERROUS FUMARATE
  27. PERPHENAZINE. [Concomitant]
     Active Substance: PERPHENAZINE
  28. PREDNISONE. [Concomitant]
     Active Substance: PREDNISONE
  29. PYRIDOXINE [Concomitant]
     Active Substance: PYRIDOXINE
     Route: 065
  30. RETINOL PALMITATE [Concomitant]
     Active Substance: VITAMIN A PALMITATE
     Route: 065
  31. TYLENOL [Concomitant]
     Active Substance: ACETAMINOPHEN
     Route: 065
  32. ENBREL [Suspect]
     Active Substance: ETANERCEPT
     Indication: RHEUMATOID ARTHRITIS
     Route: 065
  33. OXYCONTIN [Suspect]
     Active Substance: OXYCODONE HYDROCHLORIDE
     Indication: PRODUCT USED FOR UNKNOWN INDICATION
     Route: 065
  34. LOPERAMIDE [Concomitant]
     Active Substance: LOPERAMIDE
     Route: 065
  35. OXYCODONE TEREPHTHALATE [Concomitant]
     Active Substance: OXYCODONE TEREPHTHALATE
  36. PLAQUENIL [Suspect]
     Active Substance: HYDROXYCHLOROQUINE SULFATE
     Indication: RHEUMATOID ARTHRITIS
     Route: 065
  37. ESOMEPRAZOLE. [Concomitant]
     Active Substance: ESOMEPRAZOLE MAGNESIUM
     Route: 065
  38. PANTOPRAZOLE MAGNESIUM [Concomitant]
     Active Substance: PANTOPRAZOLE MAGNESIUM

REACTIONS (26)
  - Blood magnesium increased [Unknown]
  - Cyst [Unknown]
  - Deafness neurosensory [Unknown]
  - Diarrhoea [Unknown]
  - Pleural fibrosis [Unknown]
  - Treatment failure [Unknown]
  - Epigastric discomfort [Unknown]
  - Pleural thickening [Unknown]
  - Skin lesion [Unknown]
  - Infection [Unknown]
  - Osteopenia [Unknown]
  - Presbyacusis [Unknown]
  - Sleep disorder [Unknown]
  - Drug intolerance [Unknown]
  - Nausea [Unknown]
  - Drug hypersensitivity [Unknown]
  - Drug ineffective [Unknown]
  - Gastrointestinal disorder [Unknown]
  - Osteoarthritis [Unknown]
  - Contraindicated product administered [Unknown]
  - Renal impairment [Unknown]
  - Blood creatinine increased [Unknown]
  - Blood potassium increased [Unknown]
  - Dry eye [Unknown]
  - Fatigue [Unknown]
  - Hypersensitivity [Unknown]
